FAERS Safety Report 13510088 (Version 2)
Quarter: 2017Q3

REPORT INFORMATION
  Report Type: Spontaneous
  Country: GB (occurrence: GB)
  Receive Date: 20170503
  Receipt Date: 20170828
  Transmission Date: 20171127
  Serious: Yes (Other)
  Sender: FDA-Public Use
  Company Number: GB-JNJFOC-20160116795

PATIENT
  Age: 72 Year
  Sex: Female

DRUGS (1)
  1. IBRUTINIB [Suspect]
     Active Substance: IBRUTINIB
     Indication: CHRONIC LYMPHOCYTIC LEUKAEMIA
     Route: 048
     Dates: start: 201409

REACTIONS (8)
  - Chronic lymphocytic leukaemia [Unknown]
  - Lymphocyte count increased [Unknown]
  - Abdominal discomfort [Unknown]
  - Arthralgia [Unknown]
  - Haemoglobin decreased [Unknown]
  - Lower respiratory tract infection [Unknown]
  - Contusion [Not Recovered/Not Resolved]
  - Drug effect incomplete [Unknown]

NARRATIVE: CASE EVENT DATE: 201509
